FAERS Safety Report 7289368-9 (Version None)
Quarter: 2011Q1

REPORT INFORMATION
  Report Type: 
  Country: None (occurrence: None)
  Receive Date: 20110211
  Receipt Date: 20110203
  Transmission Date: 20110831
  Serious: Yes (Other)
  Sender: FDA-Public Use
  Company Number: US-US-EMD SERONO, INC.-7040343

PATIENT
  Sex: Female

DRUGS (2)
  1. ANTI-DEPRESSANT [Concomitant]
  2. REBIF [Suspect]
     Indication: PRODUCT USED FOR UNKNOWN INDICATION
     Route: 058
     Dates: start: 20091109, end: 20110101

REACTIONS (4)
  - SENSATION OF HEAVINESS [None]
  - GAIT DISTURBANCE [None]
  - COLITIS MICROSCOPIC [None]
  - FATIGUE [None]
